FAERS Safety Report 7499003-2 (Version None)
Quarter: 2011Q2

REPORT INFORMATION
  Report Type: 
  Country: None (occurrence: None)
  Receive Date: 20110524
  Receipt Date: 20110513
  Transmission Date: 20111010
  Serious: Yes (Other)
  Sender: FDA-Public Use
  Company Number: US-BAYER-200935512NA

PATIENT
  Age: 54 Year
  Sex: Male
  Weight: 103 kg

DRUGS (25)
  1. FENTANYL [Concomitant]
  2. VANCOMYCIN [Concomitant]
  3. HEPARIN [Concomitant]
  4. DIPRIVAN [Concomitant]
     Dosage: 25 CC/HR.
  5. LOPRESSOR [Concomitant]
     Dosage: 12.5 MG, QD
     Route: 048
     Dates: start: 20050521
  6. NIMBEX [Concomitant]
  7. FUROSEMIDE [Concomitant]
  8. ATIVAN [Concomitant]
  9. PANCURONIUM BROMIDE [Concomitant]
  10. CEFUROXIME [Concomitant]
  11. DIPRIVAN [Concomitant]
     Dosage: 25 ML/4 HOURS
  12. TRASYLOL [Suspect]
     Indication: AORTIC DISSECTION
     Dosage: 1 ML, UNK
     Route: 042
     Dates: start: 20050607, end: 20050607
  13. ETOMIDATE [Concomitant]
  14. LEVOFLOXACIN [Concomitant]
  15. LISINOPRIL [Concomitant]
  16. UNASYN [Concomitant]
  17. ZINACEF [Concomitant]
  18. PROTAMINE SULFATE [Concomitant]
  19. CLINDAMYCIN [Concomitant]
  20. LINEZOLID [Concomitant]
  21. TRASYLOL [Suspect]
     Indication: CORONARY ARTERY BYPASS
     Dosage: 50 CC/HR INFUSION
     Route: 042
     Dates: start: 20050607, end: 20050607
  22. TRASYLOL [Suspect]
     Dosage: UNK
     Dates: start: 20000505
  23. AUGMENTIN '125' [Concomitant]
     Dosage: 875 MG, QD
     Route: 048
     Dates: start: 20050213
  24. DOPAMINE HCL [Concomitant]
     Dosage: 5.4 MCG/HR
  25. FRESH FROZEN PLASMA [Concomitant]
     Dosage: 4 U, UNK
     Route: 042

REACTIONS (14)
  - RENAL IMPAIRMENT [None]
  - EMOTIONAL DISTRESS [None]
  - COLLAPSE OF LUNG [None]
  - INJURY [None]
  - ANHEDONIA [None]
  - AMNESIA [None]
  - RENAL INJURY [None]
  - UNEVALUABLE EVENT [None]
  - FEAR [None]
  - RENAL FAILURE [None]
  - MULTI-ORGAN FAILURE [None]
  - STRESS [None]
  - PAIN [None]
  - ANXIETY [None]
